FAERS Safety Report 5842567-2 (Version None)
Quarter: 2008Q3

REPORT INFORMATION
  Report Type: 
  Country: None (occurrence: None)
  Receive Date: 20080808
  Receipt Date: 20080729
  Transmission Date: 20090109
  Serious: Yes (Hospitalization)
  Sender: FDA-Public Use
  Company Number: 2008BI012514

PATIENT
  Age: 49 Year
  Sex: Female

DRUGS (9)
  1. AVONEX [Suspect]
     Indication: MULTIPLE SCLEROSIS
     Dosage: 30 UG; QW; IM, 30 UG; IM
     Route: 030
     Dates: start: 19990801
  2. AVONEX [Suspect]
     Indication: MULTIPLE SCLEROSIS
     Dosage: 30 UG; QW; IM, 30 UG; IM
     Route: 030
     Dates: start: 20080723
  3. PROVIGIL [Concomitant]
  4. ZOLOFT [Concomitant]
  5. DARVOCET [Concomitant]
  6. ANTACID TAB [Concomitant]
  7. H2 BLOCKERS [Concomitant]
  8. SYNTHROID [Concomitant]
  9. TOPAMAX [Concomitant]

REACTIONS (2)
  - GASTROOESOPHAGEAL REFLUX DISEASE [None]
  - HIATUS HERNIA [None]
